FAERS Safety Report 5569476-0 (Version None)
Quarter: 2007Q4

REPORT INFORMATION
  Report Type: 
  Country: None (occurrence: None)
  Receive Date: 20071220
  Receipt Date: 20071210
  Transmission Date: 20080405
  Serious: Yes (Other)
  Sender: FDA-Public Use
  Company Number: US-SANOFI-SYNTHELABO-A03200706182

PATIENT
  Age: 44 Year
  Sex: Male
  Weight: 93.4 kg

DRUGS (3)
  1. PEG-INTRON [Suspect]
     Indication: HEPATITIS C
     Dosage: UNK
     Route: 058
     Dates: start: 20070712, end: 20071016
  2. ZOLPIDEM [Suspect]
     Indication: INSOMNIA
     Route: 048
  3. RIBAVIRIN [Suspect]
     Indication: HEPATITIS C
     Dosage: UNK
     Route: 048
     Dates: start: 20070712, end: 20071016

REACTIONS (18)
  - ANGER [None]
  - BONE MARROW FAILURE [None]
  - DEHYDRATION [None]
  - DEPRESSED MOOD [None]
  - DIZZINESS [None]
  - DRUG INEFFECTIVE [None]
  - HALLUCINATION [None]
  - HEADACHE [None]
  - HYPERHIDROSIS [None]
  - HYPERSOMNIA [None]
  - INJECTION SITE REACTION [None]
  - LIP DRY [None]
  - MALAISE [None]
  - NIGHTMARE [None]
  - PLATELET COUNT DECREASED [None]
  - T-LYMPHOCYTE COUNT DECREASED [None]
  - WEIGHT DECREASED [None]
  - WHITE BLOOD CELL COUNT DECREASED [None]
